FAERS Safety Report 4624402-3 (Version None)
Quarter: 2005Q1

REPORT INFORMATION
  Report Type: 
  Country: None (occurrence: None)
  Receive Date: 20050330
  Receipt Date: 20050330
  Transmission Date: 20050727
  Serious: Yes (Hospitalization)
  Sender: FDA-Public Use
  Company Number: None

PATIENT
  Age: 61 Year
  Sex: Female
  Weight: 92.9874 kg

DRUGS (21)
  1. IRINOTECAN HCL [Suspect]
     Indication: SMALL CELL LUNG CANCER STAGE UNSPECIFIED
     Dosage: 120 MG   QD    INTRAVENOU
     Route: 042
     Dates: start: 20040601, end: 20040608
  2. CISPLATIN [Suspect]
     Dosage: 120 MG   QD  INTRAVENOU
     Route: 042
     Dates: start: 20040601, end: 20040608
  3. ZOLPIDEM TARTRATE [Concomitant]
  4. HYDROCODONE/PAP [Concomitant]
  5. GUAFENESIN/CODEINE [Concomitant]
  6. ALBUTEROL [Concomitant]
  7. CLINDAMYCIN [Concomitant]
  8. CEFEPIME [Concomitant]
  9. GEMFIBROZIL [Concomitant]
  10. NEUPOGEN [Concomitant]
  11. PLATELETS TRANSFUSION [Concomitant]
  12. MG-SULFATE [Concomitant]
  13. RED BLOOD CELLS [Concomitant]
  14. NACL INFUSION [Concomitant]
  15. LEVOFLOXACINE [Concomitant]
  16. PROMETHAZINE [Concomitant]
  17. O2 [Concomitant]
  18. KCL ISOSMOTIC [Concomitant]
  19. NEUPOGEN [Concomitant]
  20. MG-SULFATE [Concomitant]
  21. ISO-OSMOTIC [Concomitant]

REACTIONS (12)
  - AGEUSIA [None]
  - BRONCHITIS [None]
  - DIARRHOEA [None]
  - FATIGUE [None]
  - FEBRILE NEUTROPENIA [None]
  - NAUSEA [None]
  - PANCYTOPENIA [None]
  - PNEUMONIA [None]
  - PRODUCTIVE COUGH [None]
  - PYREXIA [None]
  - VOMITING [None]
  - WEIGHT DECREASED [None]
